FAERS Safety Report 25377406 (Version 2)
Quarter: 2025Q3

REPORT INFORMATION
  Report Type: Spontaneous
  Country: US (occurrence: US)
  Receive Date: 20250530
  Receipt Date: 20250925
  Transmission Date: 20251021
  Serious: No
  Sender: SANOFI AVENTIS
  Company Number: US-SA-2025SA153835

PATIENT
  Age: 38 Year
  Sex: Female
  Weight: 70.45 kg

DRUGS (5)
  1. DUPIXENT [Suspect]
     Active Substance: DUPILUMAB
     Indication: Eosinophilic oesophagitis
     Dosage: 300 MG, QW
     Route: 058
     Dates: start: 202411
  2. EPINEPHRINE [Concomitant]
     Active Substance: EPINEPHRINE
  3. SENNA S [Concomitant]
     Active Substance: DOCUSATE SODIUM\SENNOSIDES
  4. VITAMIN E [Concomitant]
     Active Substance: .ALPHA.-TOCOPHEROL
  5. ZYRTEC [Concomitant]
     Active Substance: CETIRIZINE HYDROCHLORIDE

REACTIONS (4)
  - Swelling face [Not Recovered/Not Resolved]
  - Burning sensation [Recovered/Resolved]
  - Eye allergy [Unknown]
  - Rash erythematous [Not Recovered/Not Resolved]

NARRATIVE: CASE EVENT DATE: 20250101
